FAERS Safety Report 9193766 (Version 1)
Quarter: 2013Q1

REPORT INFORMATION
  Report Type: Spontaneous
  Country: US (occurrence: None)
  Receive Date: 20130325
  Receipt Date: 20130325
  Transmission Date: 20140127
  Serious: Yes (Other)
  Sender: FDA-Public Use
  Company Number: None

PATIENT
  Age: 62 Year
  Sex: Female
  Weight: 77.11 kg

DRUGS (1)
  1. ASMANEX [Suspect]
     Indication: ASTHMA
     Dosage: 1 PUFF
     Dates: start: 20130301

REACTIONS (6)
  - Palpitations [None]
  - Abdominal pain upper [None]
  - Swelling [None]
  - Sinus headache [None]
  - Nasal congestion [None]
  - Dyspnoea [None]
